FAERS Safety Report 13261602 (Version 3)
Quarter: 2017Q4

REPORT INFORMATION
  Report Type: Spontaneous
  Country: IE (occurrence: IE)
  Receive Date: 20170222
  Receipt Date: 20171024
  Transmission Date: 20180320
  Serious: Yes (Hospitalization, Other)
  Sender: FDA-Public Use
  Company Number: IE-MYLANLABS-2017M1010884

PATIENT
  Age: 52 Year
  Sex: Male

DRUGS (9)
  1. METFORMIN BLUEFISH [Suspect]
     Active Substance: METFORMIN HYDROCHLORIDE
     Indication: TYPE 2 DIABETES MELLITUS
     Route: 048
     Dates: start: 201507, end: 20151005
  2. PRIADEL [Concomitant]
     Active Substance: LITHIUM CARBONATE
     Indication: BIPOLAR DISORDER
     Dosage: ONGOING TREATMENT
     Route: 048
  3. ROSUVASTATIN ACTAVIS [Suspect]
     Active Substance: ROSUVASTATIN
     Indication: HYPERCHOLESTEROLAEMIA
     Dosage: THERAPY START DATE PREDATES JUN/2015
     Route: 048
     Dates: end: 20151005
  4. NU-SEALS [Concomitant]
     Indication: PROPHYLAXIS
     Dosage: ONGOING TREATMENT
     Route: 048
  5. LIPANTIL SUPRA [Suspect]
     Active Substance: FENOFIBRATE
     Indication: HYPERCHOLESTEROLAEMIA
     Dosage: 145 MG, QD
     Route: 048
     Dates: start: 20150829, end: 20151005
  6. LIPANTIL SUPRA [Suspect]
     Active Substance: FENOFIBRATE
     Indication: TYPE 2 DIABETES MELLITUS
  7. PERINDOPRIL [Suspect]
     Active Substance: PERINDOPRIL
     Indication: HYPERTENSION
     Route: 048
     Dates: start: 201507, end: 20151005
  8. LIPANTIL SUPRA [Suspect]
     Active Substance: FENOFIBRATE
     Indication: HYPERTENSION
  9. LIPANTIL SUPRA [Suspect]
     Active Substance: FENOFIBRATE
     Indication: BLOOD TRIGLYCERIDES INCREASED

REACTIONS (2)
  - Tubulointerstitial nephritis [Recovering/Resolving]
  - Drug hypersensitivity [Unknown]

NARRATIVE: CASE EVENT DATE: 201510
